FAERS Safety Report 18331668 (Version 2)
Quarter: 2020Q4

REPORT INFORMATION
  Report Type: Spontaneous
  Country: DE (occurrence: DE)
  Receive Date: 20200930
  Receipt Date: 20201009
  Transmission Date: 20210113
  Serious: Yes (Other)
  Sender: FDA-Public Use
  Company Number: DE-AUROBINDO-AUR-APL-2020-049892

PATIENT
  Age: 79 Year
  Sex: Male
  Weight: 65 kg

DRUGS (19)
  1. TASIGNA [Concomitant]
     Active Substance: NILOTINIB
     Indication: PRODUCT USED FOR UNKNOWN INDICATION
     Dosage: 200 MILLIGRAM, ONCE A DAY
     Route: 065
     Dates: start: 201310
  2. ASS ABZ PROTECT [Concomitant]
     Indication: PROPHYLAXIS
     Dosage: 100 MILLIGRAM, ONCE A DAY
     Route: 065
  3. RAMIPRIL-ISIS [Concomitant]
     Indication: BLOOD PRESSURE MEASUREMENT
     Dosage: UNK
     Route: 065
     Dates: start: 20190705
  4. LEVETIRACETAM 500MG [Suspect]
     Active Substance: LEVETIRACETAM
     Dosage: 1250 MILLIGRAM (500-0-750)
     Route: 065
     Dates: start: 20200219
  5. LAMOTRIGINE. [Suspect]
     Active Substance: LAMOTRIGINE
     Dosage: 125 MILLIGRAM, TWO TIMES A DAY (125-0-125)
     Route: 065
     Dates: start: 20171220
  6. SIMVA [Concomitant]
     Active Substance: SIMVASTATIN
     Indication: BLOOD CHOLESTEROL
     Dosage: 20 MILLIGRAM, ONCE A DAY
     Route: 065
  7. ZOPICLODURA [Suspect]
     Active Substance: ZOPICLONE
     Indication: SLEEP DISORDER
     Dosage: 7.5 MICROGRAM, AS NECESSARY
     Route: 065
  8. LAMOTRIGINE. [Suspect]
     Active Substance: LAMOTRIGINE
     Indication: EPILEPSY
     Dosage: 25 MILLIGRAM, ONCE A DAY
     Route: 065
     Dates: start: 20120626
  9. ASS ABZ PROTECT [Concomitant]
     Indication: THROMBOSIS PROPHYLAXIS
  10. GLIVEC [Concomitant]
     Active Substance: IMATINIB MESYLATE
     Dosage: 400 MILLIGRAM, ONCE A DAY
     Route: 065
     Dates: start: 20140701
  11. LEVETIRACETAM 500MG [Suspect]
     Active Substance: LEVETIRACETAM
     Indication: EPILEPSY
     Dosage: 500 - 0 - 750MG/TAG
     Route: 048
     Dates: start: 20190913
  12. LEVETIRACETAM 500MG [Suspect]
     Active Substance: LEVETIRACETAM
     Dosage: 15000 MILLIGRAM, ONCE A DAY (500 - 0 - 1000)
     Route: 048
     Dates: start: 20191030
  13. LAMOTRIGINE. [Suspect]
     Active Substance: LAMOTRIGINE
     Dosage: 25 MILLIGRAM, 3 TIMES A DAY (25 - 25 - 25MG)
     Route: 065
     Dates: start: 20161108
  14. LAMOTRIGINE. [Suspect]
     Active Substance: LAMOTRIGINE
     Dosage: 75 MILLIGRAM, TWO TIMES A DAY (75-0-75MG)
     Route: 065
     Dates: start: 20170207
  15. GLIVEC [Concomitant]
     Active Substance: IMATINIB MESYLATE
     Indication: CHRONIC MYELOID LEUKAEMIA
     Dosage: 100 MILLIGRAM, FOUR TIMES/DAY
     Route: 065
     Dates: start: 20020211
  16. LAMOTRIGINE. [Suspect]
     Active Substance: LAMOTRIGINE
     Dosage: 200 MILLIGRAM, TWO TIMES A DAY (200 - 0 - 200)
     Route: 065
     Dates: start: 20171107
  17. LAMOTRIGINE. [Suspect]
     Active Substance: LAMOTRIGINE
     Dosage: 100 MILLIGRAM, TWO TIMES A DAY (100-0-100MG)
     Route: 065
     Dates: start: 20171107
  18. TAVOR EXPIDET [Concomitant]
     Active Substance: LORAZEPAM
     Indication: PRODUCT USED FOR UNKNOWN INDICATION
     Dosage: 1 MILLIGRAM (NUR IM NOTFALL BEI EINER ATTACKE)
     Route: 065
  19. LAMOTRIGINE. [Suspect]
     Active Substance: LAMOTRIGINE
     Dosage: 150 MILLIGRAM, TWO TIMES A DAY (150-0-1150MG)
     Route: 065
     Dates: start: 20180211

REACTIONS (7)
  - Depression [Not Recovered/Not Resolved]
  - Vertigo positional [Not Recovered/Not Resolved]
  - Adverse reaction [Unknown]
  - Fatigue [Not Recovered/Not Resolved]
  - Dizziness [Not Recovered/Not Resolved]
  - Basal cell carcinoma [Not Recovered/Not Resolved]
  - Gait disturbance [Not Recovered/Not Resolved]

NARRATIVE: CASE EVENT DATE: 20190920
